FAERS Safety Report 7325028-3 (Version None)
Quarter: 2011Q1

REPORT INFORMATION
  Report Type: 
  Country: None (occurrence: None)
  Receive Date: 20110302
  Receipt Date: 20110218
  Transmission Date: 20110831
  Serious: Yes (Other)
  Sender: FDA-Public Use
  Company Number: JP-BAYER-2011-010580

PATIENT
  Sex: Male
  Weight: 40 kg

DRUGS (11)
  1. AVELOX [Suspect]
     Indication: PNEUMONIA
     Dosage: 400 MG, QD
     Route: 048
     Dates: start: 20110122, end: 20110129
  2. DEPAS [Concomitant]
     Indication: SLEEP DISORDER
     Dosage: 0.5 MG, QD
     Route: 048
  3. SALMETEROL [Concomitant]
     Indication: CHRONIC OBSTRUCTIVE PULMONARY DISEASE
     Dosage: 500 ?G, QD
     Route: 055
  4. UNIPHYL [Concomitant]
     Indication: CHRONIC OBSTRUCTIVE PULMONARY DISEASE
     Dosage: 40 MG, QD
     Route: 048
  5. MYSLEE [Concomitant]
     Indication: SLEEP DISORDER
     Dosage: 5 MG, QD
     Route: 048
  6. CLARITH [Concomitant]
     Indication: RESPIRATORY TRACT INFECTION
     Dosage: 200 MG, QD
     Route: 048
  7. MOHRUS YUTOKU [Concomitant]
     Indication: ARTHRALGIA
     Dosage: DAILY DOSE 20 MG
     Route: 062
  8. SPIRIVA [Concomitant]
     Indication: CHRONIC OBSTRUCTIVE PULMONARY DISEASE
     Dosage: UNK UNK, QD
     Route: 055
  9. MAGMITT [Concomitant]
     Indication: CONSTIPATION
     Dosage: 990 MG, QD
     Route: 048
  10. AVELOX [Suspect]
     Indication: CHRONIC OBSTRUCTIVE PULMONARY DISEASE
     Dosage: UNK
     Route: 048
     Dates: start: 20101101, end: 20101101
  11. HOKUNALIN [Concomitant]
     Indication: CHRONIC OBSTRUCTIVE PULMONARY DISEASE
     Dosage: DAILY DOSE 2 MG
     Route: 062

REACTIONS (1)
  - HYPOGLYCAEMIA [None]
